FAERS Safety Report 18867188 (Version 1)
Quarter: 2021Q1

REPORT INFORMATION
  Report Type: Spontaneous
  Country: US (occurrence: US)
  Receive Date: 20210209
  Receipt Date: 20210209
  Transmission Date: 20210420
  Serious: Yes (Disabling, Other)
  Sender: FDA-Public Use
  Company Number: US-PURDUE-USA-2020-0199119

PATIENT
  Sex: Female

DRUGS (1)
  1. OXYCONTIN [Suspect]
     Active Substance: OXYCODONE HYDROCHLORIDE
     Indication: PRODUCT USED FOR UNKNOWN INDICATION
     Dosage: UNKNOWN
     Route: 048

REACTIONS (19)
  - Spinal column injury [Unknown]
  - Back injury [Unknown]
  - Amnesia [Unknown]
  - Anger [Unknown]
  - Dental caries [Unknown]
  - Depression [Unknown]
  - Nightmare [Unknown]
  - Anxiety [Unknown]
  - Drug dependence [Unknown]
  - Bedridden [Unknown]
  - Insomnia [Unknown]
  - Overdose [Unknown]
  - Quality of life decreased [Unknown]
  - Cardiac disorder [Unknown]
  - Irritability [Unknown]
  - Tooth abscess [Unknown]
  - Mental disorder [Unknown]
  - Dizziness [Unknown]
  - Post-traumatic stress disorder [Unknown]
